FAERS Safety Report 17579570 (Version 1)
Quarter: 2020Q1

REPORT INFORMATION
  Report Type: Spontaneous
  Country: GB (occurrence: GB)
  Receive Date: 20200325
  Receipt Date: 20200325
  Transmission Date: 20200409
  Serious: Yes (Life-Threatening, Hospitalization, Disabling, Other)
  Sender: FDA-Public Use
  Company Number: GB-TEVA-2019-GB-1033966

PATIENT
  Age: 44 Year
  Sex: Female

DRUGS (3)
  1. NORETHISTERONE [Suspect]
     Active Substance: NORETHINDRONE
     Indication: HORMONE REPLACEMENT THERAPY
     Dosage: 1 DOSAGE FORMS DAILY;
     Route: 048
     Dates: start: 1999, end: 20110131
  2. IRON [Concomitant]
     Active Substance: IRON
  3. ACETYLSALICYLIC ACID [Concomitant]
     Active Substance: ASPIRIN

REACTIONS (6)
  - Dizziness [Unknown]
  - Cardiac myxoma [Unknown]
  - Syncope [Unknown]
  - Dyspnoea [Unknown]
  - Blindness transient [Unknown]
  - Cough [Unknown]

NARRATIVE: CASE EVENT DATE: 2005
